FAERS Safety Report 7632607-2 (Version None)
Quarter: 2011Q3

REPORT INFORMATION
  Report Type: 
  Country: None (occurrence: None)
  Receive Date: 20110725
  Receipt Date: 20101027
  Transmission Date: 20111222
  Serious: No
  Sender: FDA-Public Use
  Company Number: US-BRISTOL-MYERS SQUIBB COMPANY-15354269

PATIENT
  Age: 77 Year
  Sex: Female

DRUGS (4)
  1. DIGOXIN [Concomitant]
  2. TOPROL-XL [Concomitant]
  3. COUMADIN [Suspect]
  4. LOVASTATIN [Concomitant]

REACTIONS (1)
  - FEELING COLD [None]
